FAERS Safety Report 10562354 (Version 2)
Quarter: 2014Q4

REPORT INFORMATION
  Report Type: Spontaneous
  Country: DK (occurrence: None)
  Receive Date: 20141031
  Receipt Date: 20141203
  Transmission Date: 20150529
  Serious: Yes (Death, Hospitalization)
  Sender: FDA-Public Use
  Company Number: FK201404446

PATIENT
  Age: 70 Year
  Sex: Male

DRUGS (10)
  1. ANCOZAN COMP (LOSARTANKALIUM, HYDROCHLORTHIAZID) [Concomitant]
  2. XELODA [Suspect]
     Active Substance: CAPECITABINE
     Indication: COLON CANCER
     Dosage: 1500MG, 2 IN 1 D, ORAL
     Route: 048
     Dates: start: 20141007
  3. OXALIPLATIN. [Suspect]
     Active Substance: OXALIPLATIN
     Indication: COLON CANCER
     Dosage: (NOT OTHERWISE SPECIFIED)
     Route: 042
     Dates: start: 20141007
  4. METOCAR (METOPROLOLTARTRAT) [Concomitant]
  5. DIGOXIN ^DAK^ (DIGOXIN) [Concomitant]
  6. PRADAXA (DABIGATRANETEXILATEMESILAT) [Concomitant]
  7. FURIX (FUROSEMID) [Concomitant]
  8. METFORMIN ^BLUEFISH^ (METFORMINHYDROCHLORID) [Concomitant]
  9. AVASTIN [Suspect]
     Active Substance: BEVACIZUMAB
     Indication: COLON CANCER
     Dosage: (NOT OTHERWISE SPECIFIED)
     Route: 042
     Dates: start: 20141007
  10. KALEORID (KALIUMCHLORID) [Concomitant]

REACTIONS (8)
  - Respiratory failure [None]
  - Ventricular hypokinesia [None]
  - Bundle branch block right [None]
  - Acute myocardial infarction [None]
  - Brain oedema [None]
  - Electrocardiogram ST segment elevation [None]
  - Cardiac arrest [None]
  - Ventricular fibrillation [None]

NARRATIVE: CASE EVENT DATE: 20141007
